FAERS Safety Report 4579277-8 (Version None)
Quarter: 2005Q1

REPORT INFORMATION
  Report Type: 
  Country: None (occurrence: None)
  Receive Date: 20050209
  Receipt Date: 20050124
  Transmission Date: 20050727
  Serious: Yes (Death, Life-Threatening)
  Sender: FDA-Public Use
  Company Number: 2004SE07007

PATIENT
  Age: 33 Year
  Sex: Female
  Weight: 80 kg

DRUGS (7)
  1. SEROQUEL [Suspect]
     Indication: SCHIZOPHRENIA, PARANOID TYPE
     Dosage: 200 MG BID PO
     Route: 048
     Dates: start: 20040601
  2. TRUXAL [Suspect]
     Indication: SCHIZOPHRENIA
     Dosage: 50 MG DAILY
     Dates: start: 20040601
  3. AKARIN [Suspect]
     Indication: DEPRESSION
     Dosage: 40 MG DAILY
     Dates: start: 20040601
  4. AKARIN [Suspect]
     Indication: SCHIZOPHRENIA
     Dosage: 40 MG DAILY
     Dates: start: 20040601
  5. REMERON [Suspect]
     Indication: DEPRESSION
     Dosage: 15 MG DAILY
     Dates: start: 20040601
  6. REMERON [Suspect]
     Indication: SCHIZOPHRENIA
     Dosage: 15 MG DAILY
     Dates: start: 20040601
  7. NOVYNETTE [Suspect]
     Indication: CONTRACEPTION
     Dosage: 150+2- UG
     Dates: start: 20041028

REACTIONS (3)
  - DYSPNOEA [None]
  - PALPITATIONS [None]
  - SUDDEN DEATH [None]
